FAERS Safety Report 25770293 (Version 2)
Quarter: 2025Q3

REPORT INFORMATION
  Report Type: Report from Study
  Country: US (occurrence: US)
  Receive Date: 20250907
  Receipt Date: 20250917
  Transmission Date: 20251021
  Serious: No
  Sender: AMGEN
  Company Number: US-AMGEN-USASP2025172906

PATIENT
  Age: 78 Year
  Sex: Female

DRUGS (3)
  1. REPATHA [Suspect]
     Active Substance: EVOLOCUMAB
     Indication: Product used for unknown indication
     Dosage: 140 MILLIGRAM PER MILLILITRE, Q2WK
     Route: 065
  2. REPATHA [Suspect]
     Active Substance: EVOLOCUMAB
     Route: 065
  3. REPATHA [Suspect]
     Active Substance: EVOLOCUMAB
     Route: 065

REACTIONS (2)
  - Injection site haemorrhage [Unknown]
  - Device difficult to use [Unknown]

NARRATIVE: CASE EVENT DATE: 20250101
